FAERS Safety Report 7017455-9 (Version None)
Quarter: 2010Q3

REPORT INFORMATION
  Report Type: 
  Country: None (occurrence: None)
  Receive Date: 20100928
  Receipt Date: 20100917
  Transmission Date: 20110219
  Serious: Yes (Other)
  Sender: FDA-Public Use
  Company Number: CA-PFIZER INC-2010089244

PATIENT
  Age: 78 Year
  Sex: Male

DRUGS (12)
  1. LYRICA [Suspect]
     Indication: DIABETIC NEUROPATHY
     Dosage: 75 MG, 1X/DAY
     Route: 048
     Dates: start: 20070101, end: 20080101
  2. LYRICA [Suspect]
     Dosage: 75 MG, 2X/DAY
     Route: 048
     Dates: start: 20080101, end: 20100901
  3. LIPITOR [Concomitant]
     Indication: BLOOD CHOLESTEROL INCREASED
     Dosage: 80 MG, 1X/DAY
     Route: 048
     Dates: start: 19990101
  4. METFORMIN [Concomitant]
     Indication: DIABETES MELLITUS
     Dosage: 250 MG, 2X/DAY
     Route: 048
     Dates: start: 20060101
  5. CELEXA [Concomitant]
     Indication: DEPRESSION
     Dosage: 1/2 OF 20MG (10 MG, 1X/DAY)
     Route: 048
     Dates: start: 20090101
  6. FLOMAX [Concomitant]
     Dosage: 0.4 MG, UNK
     Dates: end: 20100801
  7. ASPIRIN [Concomitant]
     Indication: CARDIOVASCULAR EVENT PROPHYLAXIS
     Dosage: 81 MG, 1X/DAY
     Route: 048
     Dates: start: 19990101
  8. ZOPICLONE [Concomitant]
     Indication: SLEEP DISORDER
     Dosage: 1/2 OF 7.5MG (3.75 MG, 1X/DAY)
     Route: 048
     Dates: start: 20080101
  9. COUMADIN [Concomitant]
     Indication: THROMBOSIS PROPHYLAXIS
     Dosage: 1.5 X 5MG (7.5 MG, 1X/DAY)
     Route: 048
     Dates: start: 19990101
  10. EZETROL [Concomitant]
     Indication: BLOOD CHOLESTEROL INCREASED
     Dosage: 10 MG, 1X/DAY
     Route: 048
     Dates: start: 20090101
  11. NOVO-ATENOL [Concomitant]
     Indication: BLOOD PRESSURE
     Dosage: 1/2 OF 25MG (12.5 MG, 1X/DAY)
     Route: 048
     Dates: start: 19990101
  12. NITRO-SPRAY [Concomitant]
     Indication: ANGINA PECTORIS
     Dosage: UNK, AS NEEDED
     Route: 048
     Dates: start: 19990101

REACTIONS (3)
  - ABNORMAL LOSS OF WEIGHT [None]
  - DYSPHAGIA [None]
  - THROAT TIGHTNESS [None]
